FAERS Safety Report 6320318-5 (Version None)
Quarter: 2009Q3

REPORT INFORMATION
  Report Type: 
  Country: None (occurrence: None)
  Receive Date: 20090822
  Receipt Date: 20081031
  Transmission Date: 20100115
  Serious: No
  Sender: FDA-Public Use
  Company Number: US-ABBOTT-08P-163-0485124-00

PATIENT
  Sex: Female

DRUGS (5)
  1. NIASPAN [Suspect]
     Indication: LOW DENSITY LIPOPROTEIN INCREASED
     Dates: start: 20081015
  2. NIASPAN [Suspect]
     Indication: BLOOD TRIGLYCERIDES INCREASED
  3. OLMESARTAN MEDOXOMIL [Concomitant]
     Indication: DRUG USE FOR UNKNOWN INDICATION
  4. ROSUVASTATIN [Concomitant]
     Indication: DRUG USE FOR UNKNOWN INDICATION
  5. FEXOFENADINE [Concomitant]
     Indication: DRUG USE FOR UNKNOWN INDICATION

REACTIONS (1)
  - MUSCULAR WEAKNESS [None]
